FAERS Safety Report 9512294 (Version 1)
Quarter: 2013Q3

REPORT INFORMATION
  Report Type: Spontaneous
  Country: US (occurrence: US)
  Receive Date: 20130910
  Receipt Date: 20130910
  Transmission Date: 20140515
  Serious: No
  Sender: FDA-Public Use
  Company Number: -SAAVPROD-BMS16655011

PATIENT
  Age: 85 Year
  Sex: Female

DRUGS (3)
  1. IRBESARTAN [Suspect]
     Dates: end: 20120531
  2. NEURONTIN [Concomitant]
  3. MARIPEN [Concomitant]

REACTIONS (1)
  - Tinnitus [Unknown]
